FAERS Safety Report 17833989 (Version 18)
Quarter: 2020Q4

REPORT INFORMATION
  Report Type: Report from Study
  Country: TR (occurrence: TR)
  Receive Date: 20200528
  Receipt Date: 20201109
  Transmission Date: 20210113
  Serious: Yes (Death, Hospitalization)
  Sender: FDA-Public Use
  Company Number: TR-EISAI MEDICAL RESEARCH-EC-2020-075188

PATIENT
  Age: 65 Year
  Sex: Male
  Weight: 75.3 kg

DRUGS (15)
  1. PEMBROLIZUMAB. [Suspect]
     Active Substance: PEMBROLIZUMAB
     Route: 048
     Dates: start: 20200415, end: 20200506
  2. PEMBROLIZUMAB. [Suspect]
     Active Substance: PEMBROLIZUMAB
     Route: 048
     Dates: start: 20200603, end: 20200603
  3. LENVATINIB [Suspect]
     Active Substance: LENVATINIB
     Indication: TRANSITIONAL CELL CARCINOMA
     Dosage: FLUCTUATED DOSE
     Route: 048
     Dates: start: 20191028, end: 20200324
  4. BELOC-ZOK [Concomitant]
     Active Substance: METOPROLOL SUCCINATE
     Dates: start: 20200114, end: 20200519
  5. ALLERSET [Concomitant]
     Active Substance: CETIRIZINE HYDROCHLORIDE
     Dates: start: 20200123, end: 20200615
  6. ANTEPSIN [Concomitant]
     Active Substance: SUCRALFATE
     Dates: start: 20200127, end: 20200519
  7. XARELTO [Concomitant]
     Active Substance: RIVAROXABAN
     Dates: start: 20200303, end: 20200519
  8. PANTO [Concomitant]
     Dates: start: 20200302, end: 20200519
  9. LENVATINIB [Suspect]
     Active Substance: LENVATINIB
     Route: 048
     Dates: start: 20200325, end: 20200519
  10. PEMBROLIZUMAB. [Suspect]
     Active Substance: PEMBROLIZUMAB
     Indication: TRANSITIONAL CELL CARCINOMA
     Route: 048
     Dates: start: 20191028, end: 20200303
  11. PEMBROLIZUMAB. [Suspect]
     Active Substance: PEMBROLIZUMAB
     Route: 048
     Dates: start: 20200624, end: 20200624
  12. MEGACE [Concomitant]
     Active Substance: MEGESTROL ACETATE
     Dates: start: 20191117, end: 20200723
  13. TENSART [Concomitant]
     Dates: start: 20191123, end: 20200422
  14. GAVISCON DOUBLE ACTION [Concomitant]
     Dates: start: 20200127, end: 20200519
  15. PEMBROLIZUMAB. [Suspect]
     Active Substance: PEMBROLIZUMAB
     Route: 048
     Dates: start: 20200325, end: 20200325

REACTIONS (2)
  - Oedema peripheral [Not Recovered/Not Resolved]
  - Peripheral sensory neuropathy [Not Recovered/Not Resolved]

NARRATIVE: CASE EVENT DATE: 20200401
